FAERS Safety Report 15121848 (Version 1)
Quarter: 2018Q3

REPORT INFORMATION
  Report Type: Spontaneous
  Country: US (occurrence: US)
  Receive Date: 20180709
  Receipt Date: 20180709
  Transmission Date: 20181010
  Serious: Yes (Other)
  Sender: FDA-Public Use
  Company Number: US-FRESENIUS KABI-FK201807604

PATIENT
  Age: 2 Month
  Sex: Female

DRUGS (4)
  1. CAMPATH [Suspect]
     Active Substance: ALEMTUZUMAB
     Indication: HISTIOCYTOSIS HAEMATOPHAGIC
     Route: 065
  2. MELPHALAN. [Suspect]
     Active Substance: MELPHALAN
     Indication: HISTIOCYTOSIS HAEMATOPHAGIC
     Route: 065
  3. FLUDARABINE [Suspect]
     Active Substance: FLUDARABINE PHOSPHATE
     Indication: HISTIOCYTOSIS HAEMATOPHAGIC
     Route: 065
  4. MYCOPHENOLATE MOFETIL. [Concomitant]
     Active Substance: MYCOPHENOLATE MOFETIL
     Indication: PROPHYLAXIS AGAINST GRAFT VERSUS HOST DISEASE

REACTIONS (4)
  - Enterobacter infection [Unknown]
  - Klebsiella infection [Unknown]
  - Autoimmune thyroiditis [Unknown]
  - Acinetobacter infection [Unknown]
